FAERS Safety Report 13120650 (Version 2)
Quarter: 2017Q1

REPORT INFORMATION
  Report Type: Spontaneous
  Country: US (occurrence: US)
  Receive Date: 20170117
  Receipt Date: 20170323
  Transmission Date: 20170428
  Serious: No
  Sender: FDA-Public Use
  Company Number: US-PFIZER INC-2017012640

PATIENT
  Age: 68 Year
  Sex: Female

DRUGS (1)
  1. SOMAVERT [Suspect]
     Active Substance: PEGVISOMANT
     Indication: BRAIN NEOPLASM
     Dosage: 40 MG, 1X/DAY (EVERY MORNING, 7DAY PER WEEK))

REACTIONS (4)
  - Product use issue [Unknown]
  - Product quality issue [Unknown]
  - Drug ineffective [Unknown]
  - Incorrect dose administered [Unknown]
